FAERS Safety Report 12242732 (Version 2)
Quarter: 2017Q1

REPORT INFORMATION
  Report Type: Spontaneous
  Country: US (occurrence: US)
  Receive Date: 20160406
  Receipt Date: 20170109
  Transmission Date: 20170428
  Serious: Yes (Other)
  Sender: FDA-Public Use
  Company Number: US-ELI_LILLY_AND_COMPANY-US201603011168

PATIENT
  Sex: Female

DRUGS (2)
  1. CYMBALTA [Suspect]
     Active Substance: DULOXETINE HYDROCHLORIDE
     Indication: PAIN
     Dosage: UNK, UNKNOWN
     Route: 065
  2. CYMBALTA [Suspect]
     Active Substance: DULOXETINE HYDROCHLORIDE
     Indication: DEPRESSION

REACTIONS (14)
  - Agitation [Unknown]
  - Suicidal ideation [Unknown]
  - Dysphoria [Unknown]
  - Confusional state [Unknown]
  - Affect lability [Unknown]
  - Anxiety [Unknown]
  - Withdrawal syndrome [Unknown]
  - Lethargy [Unknown]
  - Dizziness [Unknown]
  - Headache [Unknown]
  - Mood swings [Unknown]
  - Irritability [Unknown]
  - Insomnia [Unknown]
  - Vertigo [Unknown]
